FAERS Safety Report 14326642 (Version 1)
Quarter: 2017Q4

REPORT INFORMATION
  Report Type: Spontaneous
  Country: US (occurrence: US)
  Receive Date: 20171226
  Receipt Date: 20171226
  Transmission Date: 20180321
  Serious: Yes (Hospitalization)
  Sender: FDA-Public Use
  Company Number: None

PATIENT
  Age: 85 Year
  Sex: Male
  Weight: 90 kg

DRUGS (20)
  1. MECLIZINE [Concomitant]
     Active Substance: MECLIZINE HYDROCHLORIDE
  2. LOTR EL [Concomitant]
  3. ZOLPIDEM [Concomitant]
     Active Substance: ZOLPIDEM\ZOLPIDEM TARTRATE
  4. NOVOLOG [Concomitant]
     Active Substance: INSULIN ASPART
  5. SIMVASTATIN. [Concomitant]
     Active Substance: SIMVASTATIN
  6. TARCEVA [Suspect]
     Active Substance: ERLOTINIB HYDROCHLORIDE
     Indication: LUNG NEOPLASM MALIGNANT
     Route: 048
     Dates: start: 20171205
  7. FINASTERIDE. [Concomitant]
     Active Substance: FINASTERIDE
  8. LIDODERM [Concomitant]
     Active Substance: LIDOCAINE
  9. LORAZEPAM. [Concomitant]
     Active Substance: LORAZEPAM
  10. NORCO [Concomitant]
     Active Substance: ACETAMINOPHEN\HYDROCODONE BITARTRATE
  11. ICAR-C [Concomitant]
  12. VOLTAREN [Concomitant]
     Active Substance: DICLOFENAC SODIUM
  13. ASPIRIN. [Concomitant]
     Active Substance: ASPIRIN
  14. POLYETHYLENE GLYCOL [Concomitant]
     Active Substance: POLYETHYLENE GLYCOLS
  15. POTASSIUM [Concomitant]
     Active Substance: POTASSIUM
  16. STOOL SOFTENER (DOCUSATE) [Concomitant]
     Active Substance: DOCUSATE
  17. TRIAMCINOLONE [Concomitant]
     Active Substance: TRIAMCINOLONE
  18. UROXATRAL [Concomitant]
     Active Substance: ALFUZOSIN HYDROCHLORIDE
  19. FLUOXETINE [Concomitant]
     Active Substance: FLUOXETINE HYDROCHLORIDE
  20. FUROSEMIDE. [Concomitant]
     Active Substance: FUROSEMIDE

REACTIONS (5)
  - Pruritus [None]
  - Fatigue [None]
  - Decreased appetite [None]
  - Pyrexia [None]
  - Blood pressure increased [None]

NARRATIVE: CASE EVENT DATE: 20171225
